FAERS Safety Report 20016750 (Version 1)
Quarter: 2021Q4

REPORT INFORMATION
  Report Type: Spontaneous
  Country: US (occurrence: None)
  Receive Date: 20211104
  Receipt Date: 20211104
  Transmission Date: 20220303
  Serious: No
  Sender: FDA-Public Use
  Company Number: None

PATIENT
  Sex: Female

DRUGS (1)
  1. SIROLIMUS [Suspect]
     Active Substance: SIROLIMUS
     Indication: Inclusion body myositis
     Dosage: FREQUENCY : DAILY;?
     Route: 048
     Dates: end: 20210905

REACTIONS (4)
  - Chills [None]
  - Pyrexia [None]
  - Fatigue [None]
  - Diarrhoea [None]
